FAERS Safety Report 20871058 (Version 1)
Quarter: 2022Q2

REPORT INFORMATION
  Report Type: Spontaneous
  Country: US (occurrence: None)
  Receive Date: 20220524
  Receipt Date: 20220524
  Transmission Date: 20220721
  Serious: Yes (Hospitalization)
  Sender: FDA-Public Use
  Company Number: None

PATIENT
  Age: 56 Year
  Sex: Female

DRUGS (1)
  1. METHOTREXATE [Suspect]
     Active Substance: METHOTREXATE
     Dosage: UNKNOWN  OTHER ORAL?
     Route: 048
     Dates: start: 2021, end: 202204

REACTIONS (4)
  - Abdominal discomfort [None]
  - Abdominal pain upper [None]
  - Frequent bowel movements [None]
  - Loss of consciousness [None]

NARRATIVE: CASE EVENT DATE: 20220308
